FAERS Safety Report 13574184 (Version 1)
Quarter: 2017Q2

REPORT INFORMATION
  Report Type: Spontaneous
  Country: US (occurrence: US)
  Receive Date: 20170523
  Receipt Date: 20170523
  Transmission Date: 20170830
  Serious: Yes (Death, Hospitalization)
  Sender: FDA-Public Use
  Company Number: US-TEVA-770681USA

PATIENT
  Age: 25 Year
  Sex: Female

DRUGS (1)
  1. NORTRIPTYLINE [Suspect]
     Active Substance: NORTRIPTYLINE
     Indication: SUICIDE ATTEMPT
     Dosage: 1200MG
     Route: 048

REACTIONS (6)
  - Respiratory alkalosis [Fatal]
  - Seizure [Fatal]
  - Ventricular fibrillation [Fatal]
  - Completed suicide [Fatal]
  - Electrocardiogram QRS complex shortened [Fatal]
  - Intentional overdose [Fatal]
